FAERS Safety Report 6773049-1 (Version None)
Quarter: 2010Q2

REPORT INFORMATION
  Report Type: 
  Country: None (occurrence: None)
  Receive Date: 20100614
  Receipt Date: 20100604
  Transmission Date: 20101027
  Serious: Yes (Hospitalization)
  Sender: FDA-Public Use
  Company Number: 2010GW000427

PATIENT
  Sex: Male

DRUGS (1)
  1. MAXAIR [Suspect]
     Indication: ASTHMA
     Dosage: 0.2 MG; INH
     Route: 055

REACTIONS (10)
  - ASTHMA [None]
  - BRONCHITIS [None]
  - CANDIDIASIS [None]
  - DRUG INEFFECTIVE [None]
  - DYSPNOEA [None]
  - HYPERSENSITIVITY [None]
  - INFECTIOUS MONONUCLEOSIS [None]
  - PNEUMONIA [None]
  - THROAT TIGHTNESS [None]
  - URTICARIA [None]
